FAERS Safety Report 8246521 (Version 6)
Quarter: 2014Q2

REPORT INFORMATION
  Report Type: Spontaneous
  Country: DK (occurrence: DK)
  Receive Date: 20111116
  Receipt Date: 20140409
  Transmission Date: 20141212
  Serious: Yes (Life-Threatening, Hospitalization, Disabling)
  Sender: FDA-Public Use
  Company Number: DK-JNJFOC-20111102182

PATIENT
  Age: 24 Year
  Sex: Male
  Weight: 86 kg

DRUGS (5)
  1. REMICADE [Suspect]
     Indication: CROHN^S DISEASE
     Dosage: RECEIVED APPROXIMATELY 40 NFUSIONS
     Route: 042
     Dates: start: 20080523, end: 20110623
  2. REMICADE [Suspect]
     Indication: CROHN^S DISEASE
     Route: 042
     Dates: start: 200602
  3. REMICADE [Suspect]
     Indication: CROHN^S DISEASE
     Route: 042
     Dates: start: 2004
  4. PREDNISOLONE [Concomitant]
     Route: 065
  5. SALICYLIC ACID [Concomitant]

REACTIONS (6)
  - Hodgkin^s disease stage III [Not Recovered/Not Resolved]
  - Hodgkin^s disease nodular sclerosis stage III [Unknown]
  - Back pain [Unknown]
  - C-reactive protein increased [Unknown]
  - Melanocytic naevus [Unknown]
  - Ingrowing nail [Recovered/Resolved]
